FAERS Safety Report 7783852-7 (Version None)
Quarter: 2011Q3

REPORT INFORMATION
  Report Type: 
  Country: None (occurrence: None)
  Receive Date: 20110928
  Receipt Date: 20110927
  Transmission Date: 20111222
  Serious: Yes (Hospitalization)
  Sender: FDA-Public Use
  Company Number: US-GLAXOSMITHKLINE-A0790595A

PATIENT
  Age: 73 Year
  Sex: Male

DRUGS (6)
  1. LANTUS [Concomitant]
  2. ALBUTEROL [Concomitant]
  3. METFORMIN HCL [Concomitant]
  4. LIPITOR [Concomitant]
  5. AVANDIA [Suspect]
     Indication: DIABETES MELLITUS
     Dosage: 4MG TWICE PER DAY
     Route: 048
     Dates: end: 20070101
  6. GLIPIZIDE [Concomitant]

REACTIONS (16)
  - SUPRAVENTRICULAR EXTRASYSTOLES [None]
  - MYOCARDIAL INFARCTION [None]
  - TREATMENT NONCOMPLIANCE [None]
  - BUNDLE BRANCH BLOCK RIGHT [None]
  - PNEUMOTHORAX [None]
  - CORONARY ARTERY STENOSIS [None]
  - RENAL FAILURE ACUTE [None]
  - CEREBRAL ISCHAEMIA [None]
  - HYPOTENSION [None]
  - ISCHAEMIC CARDIOMYOPATHY [None]
  - CHRONIC OBSTRUCTIVE PULMONARY DISEASE [None]
  - SINUS BRADYCARDIA [None]
  - FALL [None]
  - ATRIOVENTRICULAR BLOCK FIRST DEGREE [None]
  - CARDIAC FAILURE CONGESTIVE [None]
  - OSTEOARTHRITIS [None]
